FAERS Safety Report 8202787-9 (Version None)
Quarter: 2012Q1

REPORT INFORMATION
  Report Type: 
  Country: None (occurrence: None)
  Receive Date: 20120312
  Receipt Date: 20120312
  Transmission Date: 20120608
  Serious: Yes (Hospitalization)
  Sender: FDA-Public Use
  Company Number: None

PATIENT
  Sex: Female
  Weight: 69.853 kg

DRUGS (1)
  1. SUBOXONE [Suspect]
     Indication: DEPENDENCE
     Dosage: 8MG
     Route: 060
     Dates: start: 20110222, end: 20120222

REACTIONS (5)
  - HYPOAESTHESIA ORAL [None]
  - GLOSSODYNIA [None]
  - MOUTH INJURY [None]
  - ERYTHEMA [None]
  - TONGUE DISORDER [None]
